FAERS Safety Report 8694387 (Version 2)
Quarter: 2012Q4

REPORT INFORMATION
  Report Type: 
  Country: BE (occurrence: BE)
  Receive Date: 20120731
  Receipt Date: 20120907
  Transmission Date: 20130627
  Serious: Yes (Life-Threatening, Hospitalization)
  Sender: FDA-Public Use
  Company Number: BE-TEVA-349961ISR

PATIENT
  Age: 76 Year
  Sex: Female
  Weight: 69 kg

DRUGS (9)
  1. DONEPEZIL [Suspect]
     Indication: DEMENTIA ALZHEIMER^S TYPE
     Route: 048
     Dates: start: 20111205, end: 20120116
  2. DONEPEZIL [Interacting]
  3. FLUTICASONE [Interacting]
     Indication: DEPRESSION
     Route: 048
     Dates: start: 2008, end: 20120122
  4. REDOMEX [Concomitant]
     Indication: PAIN
     Route: 048
     Dates: start: 2009, end: 20120122
  5. ZADITEN [Concomitant]
     Indication: PRURITUS
     Route: 048
     Dates: start: 2009, end: 20120122
  6. ZADITE, RETARD [Concomitant]
     Indication: PRURITUS
     Route: 048
     Dates: start: 2009, end: 20120122
  7. FENISTIL [Concomitant]
     Indication: PRURITUS
     Route: 048
     Dates: start: 2010, end: 20120122
  8. ATACAND PLUS [Concomitant]
     Indication: HYPERTENSION
     Route: 048
     Dates: start: 2000
  9. ZANIDIP [Concomitant]
     Indication: HYPERTENSION
     Route: 048
     Dates: start: 2000, end: 20120110

REACTIONS (12)
  - Confusional state [Recovered/Resolved]
  - Drug interaction [Unknown]
  - Decreased appetite [Recovered/Resolved]
  - Hypotension [Recovered/Resolved]
  - Aggression [Recovered/Resolved]
  - Agitation [Recovered/Resolved]
  - Stupor [Recovered/Resolved]
  - Bradycardia [Recovered/Resolved]
  - Coma [None]
  - Weight decreased [None]
  - Metabolic disorder [None]
  - Toxicity to various agents [None]
